FAERS Safety Report 8890553 (Version 2)
Quarter: 2012Q4

REPORT INFORMATION
  Report Type: 
  Country: BR (occurrence: BR)
  Receive Date: 20121107
  Receipt Date: 20121114
  Transmission Date: 20130627
  Serious: Yes (Other)
  Sender: FDA-Public Use
  Company Number: PHHY2012BR098772

PATIENT
  Sex: Female
  Weight: 2.15 kg

DRUGS (4)
  1. FORASEQ [Suspect]
     Indication: DYSPNOEA
     Dosage: Maternal dose: 12/400mcg 60/60
     Route: 064
  2. FRAGMIN [Concomitant]
     Route: 064
  3. EUTHYROX [Concomitant]
     Route: 064
  4. VISKEN [Concomitant]
     Route: 064

REACTIONS (2)
  - Premature baby [Unknown]
  - Foetal exposure during pregnancy [Unknown]
